FAERS Safety Report 21778671 (Version 1)
Quarter: 2022Q4

REPORT INFORMATION
  Report Type: Spontaneous
  Country: HU (occurrence: HU)
  Receive Date: 20221226
  Receipt Date: 20221226
  Transmission Date: 20230112
  Serious: No
  Sender: FDA-Public Use
  Company Number: HU-MIGRATION_PFIZER-2022BHV003234

PATIENT
  Sex: Female

DRUGS (1)
  1. NURTEC ODT [Suspect]
     Active Substance: RIMEGEPANT SULFATE
     Indication: Product used for unknown indication
     Route: 065

REACTIONS (3)
  - Incorrect dose administered [Unknown]
  - Feeling abnormal [Recovered/Resolved]
  - Malaise [Recovered/Resolved]
